FAERS Safety Report 14258219 (Version 1)
Quarter: 2017Q4

REPORT INFORMATION
  Report Type: Spontaneous
  Country: US (occurrence: US)
  Receive Date: 20171206
  Receipt Date: 20171206
  Transmission Date: 20180321
  Serious: No
  Sender: FDA-Public Use
  Company Number: None

PATIENT
  Age: 55 Year
  Sex: Female
  Weight: 98.55 kg

DRUGS (7)
  1. LORATADINE. [Concomitant]
     Active Substance: LORATADINE
  2. CIPROFLOXACIN HCL [Suspect]
     Active Substance: CIPROFLOXACIN HYDROCHLORIDE
     Indication: URINARY TRACT INFECTION
     Dosage: ?          QUANTITY:1 TABLET(S);?
     Route: 048
     Dates: start: 20171205, end: 20171205
  3. INVOKANA [Concomitant]
     Active Substance: CANAGLIFLOZIN
  4. METFORMIN [Concomitant]
     Active Substance: METFORMIN HYDROCHLORIDE
  5. CENTURM WOMEN^S MULTI-VITAMIN/MULTI-MINERAL SUPPLEMENT [Concomitant]
  6. EFFEXOR XR [Concomitant]
     Active Substance: VENLAFAXINE HYDROCHLORIDE
  7. GLYBURIDE. [Concomitant]
     Active Substance: GLYBURIDE

REACTIONS (1)
  - Dizziness [None]

NARRATIVE: CASE EVENT DATE: 20171205
